FAERS Safety Report 8178404 (Version 2)
Quarter: 2015Q3

REPORT INFORMATION
  Report Type: Spontaneous
  Country: IT (occurrence: IT)
  Receive Date: 20111013
  Receipt Date: 20150909
  Transmission Date: 20151125
  Serious: Yes (Other)
  Sender: FDA-Public Use
  Company Number: IT-BRISTOL-MYERS SQUIBB COMPANY-16146128

PATIENT
  Age: 12 Year
  Sex: Female

DRUGS (1)
  1. DASATINIB [Suspect]
     Active Substance: DASATINIB
     Indication: CHRONIC MYELOID LEUKAEMIA
     Dosage: 10MAR10-20MG TO 40MG  31MAR11-40MG/DAY  4MAY10-60MG  8JUN10-80MG  5JUL10-80-60MG
     Route: 065

REACTIONS (2)
  - Hypertensive encephalopathy [Unknown]
  - Nephrotic syndrome [Unknown]
